FAERS Safety Report 25879882 (Version 2)
Quarter: 2025Q4

REPORT INFORMATION
  Report Type: Report from Study
  Country: US (occurrence: None)
  Receive Date: 20251004
  Receipt Date: 20251121
  Transmission Date: 20260117
  Serious: Yes (Other)
  Sender: UCB
  Company Number: US-UCBSA-2025061572

PATIENT
  Age: 31 Year
  Weight: 56 kg

DRUGS (1)
  1. FENFLURAMINE HYDROCHLORIDE [Suspect]
     Active Substance: FENFLURAMINE HYDROCHLORIDE
     Indication: Lennox-Gastaut syndrome
     Dosage: 5.5 MILLILITER, 2X/DAY (BID)

REACTIONS (1)
  - Pericardial effusion [Not Recovered/Not Resolved]
